FAERS Safety Report 20221638 (Version 7)
Quarter: 2023Q2

REPORT INFORMATION
  Report Type: Report from Study
  Country: US (occurrence: US)
  Receive Date: 20211223
  Receipt Date: 20230620
  Transmission Date: 20230721
  Serious: Yes (Hospitalization, Other)
  Sender: FDA-Public Use
  Company Number: US-AKCEA THERAPEUTICS, INC.-2021IS001984

PATIENT

DRUGS (2)
  1. TEGSEDI [Suspect]
     Active Substance: INOTERSEN SODIUM
     Indication: Hereditary neuropathic amyloidosis
     Dosage: 284 MG, QW
     Route: 058
     Dates: start: 20210114
  2. TEGSEDI [Suspect]
     Active Substance: INOTERSEN SODIUM
     Dosage: 284 MG, QW
     Route: 058

REACTIONS (21)
  - COVID-19 [Unknown]
  - Cerebrovascular accident [Unknown]
  - Pulmonary oedema [Unknown]
  - Malaise [Unknown]
  - Peripheral coldness [Unknown]
  - Poor peripheral circulation [Unknown]
  - Skin discolouration [Unknown]
  - Oedema peripheral [Unknown]
  - Vomiting [Unknown]
  - Haemoglobin decreased [Unknown]
  - Swelling [Unknown]
  - Blood electrolytes abnormal [Unknown]
  - Feeling abnormal [Unknown]
  - Bronchitis [Unknown]
  - Pericardial effusion [Unknown]
  - Perinephric collection [Unknown]
  - Pneumonia [Unknown]
  - Cardiac failure chronic [Unknown]
  - Cardiac disorder [Unknown]
  - Product dose omission issue [Unknown]
  - Dyspnoea [Unknown]

NARRATIVE: CASE EVENT DATE: 20220116
